FAERS Safety Report 21348999 (Version 1)
Quarter: 2022Q3

REPORT INFORMATION
  Report Type: Spontaneous
  Country: CN (occurrence: CN)
  Receive Date: 20220919
  Receipt Date: 20220919
  Transmission Date: 20221026
  Serious: Yes (Hospitalization)
  Sender: FDA-Public Use
  Company Number: CN-NOVARTISPH-NVSC2022CN209750

PATIENT
  Age: 66 Year
  Sex: Male
  Weight: 40 kg

DRUGS (6)
  1. TISLELIZUMAB [Suspect]
     Active Substance: TISLELIZUMAB
     Indication: Gastric cancer
     Dosage: 200 MG
     Route: 041
     Dates: start: 20220731
  2. TISLELIZUMAB [Suspect]
     Active Substance: TISLELIZUMAB
     Dosage: 200 MG
     Route: 041
     Dates: start: 20220820
  3. OXALIPLATIN [Suspect]
     Active Substance: OXALIPLATIN
     Indication: Gastric cancer
     Dosage: UNK
     Route: 065
     Dates: start: 20220731
  4. OXALIPLATIN [Suspect]
     Active Substance: OXALIPLATIN
     Dosage: 170 MG
     Route: 041
     Dates: start: 20220820
  5. TEGAFUR [Suspect]
     Active Substance: TEGAFUR
     Indication: Gastric cancer
     Dosage: UNK
     Route: 065
     Dates: start: 20220731
  6. TEGAFUR [Suspect]
     Active Substance: TEGAFUR
     Dosage: 20 MG, BID
     Route: 048
     Dates: start: 20220820

REACTIONS (2)
  - White blood cell count decreased [Recovering/Resolving]
  - Anaemia [Recovering/Resolving]

NARRATIVE: CASE EVENT DATE: 20220908
